FAERS Safety Report 19942725 (Version 1)
Quarter: 2021Q4

REPORT INFORMATION
  Report Type: Spontaneous
  Country: US (occurrence: US)
  Receive Date: 20211011
  Receipt Date: 20211011
  Transmission Date: 20220304
  Serious: No
  Sender: FDA-Public Use
  Company Number: US-PFIZER INC-2021785157

PATIENT
  Age: 81 Year
  Sex: Female
  Weight: 61.23 kg

DRUGS (4)
  1. IBRANCE [Suspect]
     Active Substance: PALBOCICLIB
     Indication: Breast cancer metastatic
     Dosage: 125 MG, UNK
  2. IBRANCE [Suspect]
     Active Substance: PALBOCICLIB
     Dosage: 100 MG
  3. ELIQUIS [Concomitant]
     Active Substance: APIXABAN
     Indication: Atrial fibrillation
     Dosage: 2.5 MG, 2X/DAY
  4. PREMARIN [Concomitant]
     Active Substance: ESTROGENS, CONJUGATED
     Indication: Uterine prolapse
     Dosage: 1 G, 2X/WEEK

REACTIONS (5)
  - Nail ridging [Not Recovered/Not Resolved]
  - Onycholysis [Not Recovered/Not Resolved]
  - White blood cell count decreased [Unknown]
  - Body height decreased [Unknown]
  - Musculoskeletal discomfort [Unknown]
